FAERS Safety Report 11861933 (Version 2)
Quarter: 2015Q4

REPORT INFORMATION
  Report Type: Spontaneous
  Country: US (occurrence: US)
  Receive Date: 20151222
  Receipt Date: 20151222
  Transmission Date: 20160305
  Serious: No
  Sender: FDA-Public Use
  Company Number: US-ROCHE-1145243

PATIENT
  Sex: Male

DRUGS (3)
  1. PEGASYS [Suspect]
     Active Substance: PEGINTERFERON ALFA-2A
     Route: 065
  2. PEGASYS [Suspect]
     Active Substance: PEGINTERFERON ALFA-2A
     Indication: HEPATITIS C
     Route: 065
     Dates: start: 20120817
  3. COPEGUS [Suspect]
     Active Substance: RIBAVIRIN
     Indication: HEPATITIS C
     Dosage: 600 MG AT BED TIME AND 400 MG AT AROUND 7 AM.
     Route: 065
     Dates: start: 20120817

REACTIONS (7)
  - Headache [Unknown]
  - Decreased appetite [Unknown]
  - Mental disorder [Unknown]
  - Pain [Unknown]
  - Nausea [Unknown]
  - Insomnia [Unknown]
  - Blood test abnormal [Unknown]
